FAERS Safety Report 9712726 (Version 1)
Quarter: 2013Q4

REPORT INFORMATION
  Report Type: Spontaneous
  Country: US (occurrence: US)
  Receive Date: 20131126
  Receipt Date: 20131126
  Transmission Date: 20140711
  Serious: Yes (Other)
  Sender: FDA-Public Use
  Company Number: US-BRISTOL-MYERS SQUIBB COMPANY-19217553

PATIENT
  Age: 49 Year
  Sex: Female
  Weight: 89.34 kg

DRUGS (3)
  1. BYDUREON [Suspect]
     Indication: TYPE 2 DIABETES MELLITUS
     Dates: start: 20130824, end: 20130824
  2. GLYBURIDE [Concomitant]
  3. METFORMIN [Concomitant]

REACTIONS (1)
  - Hypersensitivity [Unknown]
